FAERS Safety Report 16279942 (Version 1)
Quarter: 2019Q2

REPORT INFORMATION
  Report Type: Spontaneous
  Country: US (occurrence: US)
  Receive Date: 20190507
  Receipt Date: 20190507
  Transmission Date: 20190711
  Serious: No
  Sender: FDA-Public Use
  Company Number: US-ASTRAZENECA-2019SE56763

PATIENT
  Age: 25270 Day
  Sex: Male

DRUGS (1)
  1. BYDUREON BCISE [Suspect]
     Active Substance: EXENATIDE
     Route: 058

REACTIONS (5)
  - Incorrect dose administered by device [Not Recovered/Not Resolved]
  - Incorrect route of product administration [Unknown]
  - Injection site haemorrhage [Not Recovered/Not Resolved]
  - Device malfunction [Unknown]
  - Injection site extravasation [Unknown]

NARRATIVE: CASE EVENT DATE: 20190408
